FAERS Safety Report 7726878-1 (Version None)
Quarter: 2011Q3

REPORT INFORMATION
  Report Type: 
  Country: None (occurrence: None)
  Receive Date: 20110902
  Receipt Date: 20110822
  Transmission Date: 20111222
  Serious: Yes (Hospitalization, Other)
  Sender: FDA-Public Use
  Company Number: US-MERCK-1106USA00876

PATIENT
  Sex: Male

DRUGS (3)
  1. ADVAIR DISKUS 100/50 [Concomitant]
     Indication: ASTHMA
     Route: 065
  2. SINGULAIR [Suspect]
     Indication: ASTHMA
     Route: 048
  3. XOPENEX [Concomitant]
     Indication: ASTHMA
     Route: 065

REACTIONS (7)
  - GALLBLADDER DISORDER [None]
  - IMMUNE SYSTEM DISORDER [None]
  - RHINITIS [None]
  - RASH [None]
  - DYSPHAGIA [None]
  - DIABETES MELLITUS [None]
  - AUTOIMMUNE THYROIDITIS [None]
